FAERS Safety Report 14754591 (Version 7)
Quarter: 2019Q3

REPORT INFORMATION
  Report Type: Spontaneous
  Country: US (occurrence: US)
  Receive Date: 20180413
  Receipt Date: 20190809
  Transmission Date: 20191004
  Serious: No
  Sender: FDA-Public Use
  Company Number: US-BIOGEN-2018BI00552436

PATIENT
  Sex: Female

DRUGS (12)
  1. TYSABRI [Suspect]
     Active Substance: NATALIZUMAB
     Route: 042
     Dates: end: 20190520
  2. RISPERIDONE. [Concomitant]
     Active Substance: RISPERIDONE
     Dosage: 0.5 ONCE A DAY
     Route: 065
  3. SYNTHROID [Concomitant]
     Active Substance: LEVOTHYROXINE SODIUM
     Route: 065
  4. CARBAMAZEPINE. [Concomitant]
     Active Substance: CARBAMAZEPINE
     Route: 048
  5. ZANAFLEX [Concomitant]
     Active Substance: TIZANIDINE HYDROCHLORIDE
     Dosage: 1 CAPSULE AS NEEDED ORALLY 5 TIMES A DAY
     Route: 048
  6. TYSABRI [Suspect]
     Active Substance: NATALIZUMAB
     Dosage: INFUSED OVER 1 HOUR
     Route: 050
     Dates: start: 20180404
  7. MIRTAZAPINE. [Concomitant]
     Active Substance: MIRTAZAPINE
     Dosage: 1 TABLET AT BEDTIME
  8. MIRALAX [Concomitant]
     Active Substance: POLYETHYLENE GLYCOL 3350
     Dosage: PRN
     Route: 065
  9. PROMETHAZINE HCL [Concomitant]
     Active Substance: PROMETHAZINE HYDROCHLORIDE
     Dosage: 1 TABLET AS NEEDED ORALLY EVERY 6 HOURS
     Route: 048
  10. TOPAMAX [Concomitant]
     Active Substance: TOPIRAMATE
     Route: 048
  11. TYSABRI [Suspect]
     Active Substance: NATALIZUMAB
     Indication: MULTIPLE SCLEROSIS
     Dosage: INFUSED OVER 1 HOUR
     Route: 050
     Dates: start: 20180404
  12. IBUPROFEN. [Concomitant]
     Active Substance: IBUPROFEN
     Route: 065

REACTIONS (20)
  - Balance disorder [Unknown]
  - Asthenia [Unknown]
  - Feeling abnormal [Unknown]
  - Vertigo [Not Recovered/Not Resolved]
  - Gait disturbance [Not Recovered/Not Resolved]
  - Malaise [Not Recovered/Not Resolved]
  - Muscular weakness [Unknown]
  - Vision blurred [Unknown]
  - Speech disorder [Unknown]
  - Nervousness [Unknown]
  - Ataxia [Unknown]
  - Muscle spasticity [Unknown]
  - Nausea [Not Recovered/Not Resolved]
  - Depression [Recovered/Resolved]
  - Headache [Unknown]
  - Fatigue [Unknown]
  - Dizziness [Unknown]
  - Pain in extremity [Unknown]
  - Pain [Unknown]
  - Arthralgia [Recovered/Resolved]
